FAERS Safety Report 10637909 (Version 1)
Quarter: 2014Q4

REPORT INFORMATION
  Report Type: Spontaneous
  Country: US (occurrence: US)
  Receive Date: 20141208
  Receipt Date: 20141208
  Transmission Date: 20150529
  Serious: No
  Sender: FDA-Public Use
  Company Number: US-GLAXOSMITHKLINE-US2014GSK032253

PATIENT
  Sex: Female

DRUGS (1)
  1. ONDANSETRON TABLET [Suspect]
     Active Substance: ONDANSETRON
     Indication: PREGNANCY
     Dosage: UNK, U
     Route: 065
     Dates: start: 201409

REACTIONS (2)
  - Exposure during pregnancy [Unknown]
  - Maternal exposure during pregnancy [None]

NARRATIVE: CASE EVENT DATE: 201409
